FAERS Safety Report 25915275 (Version 1)
Quarter: 2025Q4

REPORT INFORMATION
  Report Type: Spontaneous
  Country: US (occurrence: US)
  Receive Date: 20251013
  Receipt Date: 20251013
  Transmission Date: 20260117
  Serious: Yes (Other)
  Sender: ALEXION PHARMACEUTICALS
  Company Number: US-ASTRAZENECA-202510GLO009122US

PATIENT
  Age: 36 Year
  Sex: Female

DRUGS (1)
  1. OLAPARIB [Suspect]
     Active Substance: OLAPARIB
     Indication: Ovarian cancer metastatic
     Dosage: 300 MILLIGRAM, BID
     Route: 065
     Dates: start: 202305

REACTIONS (2)
  - Vasculitis [Unknown]
  - Cutaneous vasculitis [Unknown]
